FAERS Safety Report 19399591 (Version 1)
Quarter: 2021Q2

REPORT INFORMATION
  Report Type: Spontaneous
  Country: US (occurrence: US)
  Receive Date: 20210610
  Receipt Date: 20210610
  Transmission Date: 20210717
  Serious: No
  Sender: FDA-Public Use
  Company Number: US-PFIZER INC-2021200306

PATIENT
  Age: 62 Year
  Sex: Female
  Weight: 78.02 kg

DRUGS (2)
  1. XANAX XR [Suspect]
     Active Substance: ALPRAZOLAM
     Indication: ANXIETY
     Dosage: 2 MG IN THE MORNING AND 1 MG AT 1 PM
     Route: 048
  2. TOZINAMERAN. [Suspect]
     Active Substance: TOZINAMERAN
     Indication: COVID-19 IMMUNISATION
     Dosage: SINGLE DOSE
     Dates: start: 20210219, end: 20210219

REACTIONS (6)
  - Panic attack [Unknown]
  - Anxiety [Unknown]
  - Cold sweat [Unknown]
  - Poor quality sleep [Not Recovered/Not Resolved]
  - Taste disorder [Recovering/Resolving]
  - Hyperhidrosis [Unknown]

NARRATIVE: CASE EVENT DATE: 2021
